FAERS Safety Report 19473932 (Version 1)
Quarter: 2021Q2

REPORT INFORMATION
  Report Type: Spontaneous
  Country: US (occurrence: US)
  Receive Date: 20210629
  Receipt Date: 20210629
  Transmission Date: 20210717
  Serious: Yes (Other)
  Sender: FDA-Public Use
  Company Number: US-PFIZER INC-2021739331

PATIENT
  Age: 62 Year
  Sex: Female

DRUGS (1)
  1. CYTOMEL [Suspect]
     Active Substance: LIOTHYRONINE SODIUM
     Dosage: UNK

REACTIONS (6)
  - Fall [Unknown]
  - Suicidal ideation [Unknown]
  - Injury [Unknown]
  - Multiple sclerosis [Unknown]
  - Malaise [Unknown]
  - Tremor [Unknown]
